FAERS Safety Report 5788941-4 (Version None)
Quarter: 2008Q2

REPORT INFORMATION
  Report Type: 
  Country: None (occurrence: None)
  Receive Date: 20080626
  Receipt Date: 20080624
  Transmission Date: 20081010
  Serious: Yes (Death)
  Sender: FDA-Public Use
  Company Number: US-TEVA-170301USA

PATIENT
  Age: 11 Year
  Sex: Male

DRUGS (2)
  1. CEFTRIAXONE SODIUM FOR INJECTION USP,10G/100ML [Suspect]
     Indication: PNEUMONIA
  2. ANTI-D RH0 IMMUNOGLOBULIN [Concomitant]
     Dosage: EVERY 2-3 WEEKS

REACTIONS (1)
  - HAEMOLYSIS [None]
